FAERS Safety Report 16676600 (Version 3)
Quarter: 2021Q2

REPORT INFORMATION
  Report Type: Spontaneous
  Country: NL (occurrence: NL)
  Receive Date: 20190807
  Receipt Date: 20210507
  Transmission Date: 20210716
  Serious: Yes (Hospitalization, Other)
  Sender: FDA-Public Use
  Company Number: NL-AUROBINDO-AUR-APL-2019-044026

PATIENT
  Age: 50 Year
  Sex: Female

DRUGS (11)
  1. CLOZAPINE. [Suspect]
     Active Substance: CLOZAPINE
     Dosage: 150 MILLIGRAM, ONCE A DAY
     Route: 065
     Dates: start: 201412
  2. VENLAFAXINE [Interacting]
     Active Substance: VENLAFAXINE HYDROCHLORIDE
     Indication: MAJOR DEPRESSION
     Dosage: 37.5 MILLIGRAM, ONCE A DAY
     Route: 065
  3. CLOZAPINE. [Suspect]
     Active Substance: CLOZAPINE
     Indication: PSYCHOTIC DISORDER
     Dosage: 175 MILLIGRAM, ONCE A DAY
     Route: 065
     Dates: start: 201501
  4. CLOZAPINE. [Suspect]
     Active Substance: CLOZAPINE
     Dosage: 150 MILLIGRAM
     Route: 065
     Dates: start: 201501, end: 201502
  5. HALOPERIDOL. [Suspect]
     Active Substance: HALOPERIDOL
     Indication: PSYCHOTIC DISORDER
     Dosage: 10 MILLIGRAM, DAILY
     Route: 065
     Dates: start: 201501
  6. CLOMIPRAMINE [Concomitant]
     Active Substance: CLOMIPRAMINE
     Dosage: 25 MILLIGRAM
     Route: 065
     Dates: start: 201506
  7. CLOMIPRAMINE [Concomitant]
     Active Substance: CLOMIPRAMINE
     Dosage: 37.5 MILLIGRAM
     Route: 065
     Dates: start: 201502
  8. ARIPIPRAZOLE. [Suspect]
     Active Substance: ARIPIPRAZOLE
     Indication: PSYCHOTIC DISORDER
     Dosage: 10 MILLIGRAM
     Route: 065
     Dates: start: 201502
  9. CLOMIPRAMINE [Concomitant]
     Active Substance: CLOMIPRAMINE
     Indication: PSYCHOTIC DISORDER
     Dosage: 75 MILLIGRAM
     Route: 065
     Dates: start: 201502
  10. CLOZAPINE. [Suspect]
     Active Substance: CLOZAPINE
     Dosage: 100 MILLIGRAM, ONCE A DAY
     Route: 065
  11. CLOZAPINE. [Suspect]
     Active Substance: CLOZAPINE
     Dosage: 125 MILLIGRAM
     Route: 065
     Dates: start: 201506

REACTIONS (4)
  - Suicide attempt [Unknown]
  - Drug level increased [Recovered/Resolved]
  - Drug interaction [Unknown]
  - Drug ineffective [Unknown]
